FAERS Safety Report 21663262 (Version 2)
Quarter: 2023Q1

REPORT INFORMATION
  Report Type: Spontaneous
  Country: CN (occurrence: CN)
  Receive Date: 20221130
  Receipt Date: 20230111
  Transmission Date: 20230418
  Serious: Yes (Life-Threatening, Other)
  Sender: FDA-Public Use
  Company Number: CN-BAYER-2022A165211

PATIENT
  Age: 54 Year
  Sex: Female
  Weight: 77 kg

DRUGS (4)
  1. ULTRAVIST [Suspect]
     Active Substance: IOPROMIDE
     Indication: Angiocardiogram
     Dosage: 100 ML, ONCE
     Route: 042
     Dates: start: 20210305, end: 20210305
  2. ASPIRIN [Suspect]
     Active Substance: ASPIRIN
     Indication: Ischaemic heart disease prophylaxis
     Dosage: 100 MG, QD
     Route: 048
     Dates: start: 20210303, end: 20210305
  3. HEPARIN CALCIUM [Suspect]
     Active Substance: HEPARIN CALCIUM
     Indication: Coronary artery disease
     Dosage: 0.4 ?L, BID
     Route: 058
     Dates: start: 20210305, end: 20210305
  4. TIROFIBAN HYDROCHLORIDE [Concomitant]
     Active Substance: TIROFIBAN HYDROCHLORIDE
     Indication: Coronary artery disease
     Dosage: 50 ML, QD
     Route: 041
     Dates: start: 20210305, end: 20210305

REACTIONS (12)
  - Contrast media allergy [Recovering/Resolving]
  - Infusion related reaction [None]
  - Haematemesis [Recovering/Resolving]
  - Immune thrombocytopenia [None]
  - Heparin-induced thrombocytopenia [None]
  - White blood cell count increased [None]
  - Neutrophil percentage increased [None]
  - Neutrophil count increased [None]
  - Hyperhidrosis [Recovering/Resolving]
  - Nausea [Recovering/Resolving]
  - Chills [None]
  - Pyrexia [None]

NARRATIVE: CASE EVENT DATE: 20210305
